FAERS Safety Report 25311150 (Version 1)
Quarter: 2025Q2

REPORT INFORMATION
  Report Type: Report from Study
  Country: CA (occurrence: CA)
  Receive Date: 20250514
  Receipt Date: 20250514
  Transmission Date: 20250717
  Serious: Yes (Hospitalization)
  Sender: ABBVIE
  Company Number: CA-ABBVIE-6276729

PATIENT
  Age: 58 Year
  Sex: Female

DRUGS (1)
  1. SKYRIZI [Suspect]
     Active Substance: RISANKIZUMAB-RZAA
     Indication: Crohn^s disease
     Route: 058

REACTIONS (5)
  - Vomiting [Unknown]
  - Diarrhoea [Unknown]
  - Obstruction [Unknown]
  - Drug ineffective [Unknown]
  - Anaemia [Unknown]

NARRATIVE: CASE EVENT DATE: 20250503
